FAERS Safety Report 9164426 (Version 1)
Quarter: 2013Q1

REPORT INFORMATION
  Report Type: Spontaneous
  Country: DE (occurrence: None)
  Receive Date: 20130226
  Receipt Date: 20130226
  Transmission Date: 20140127
  Serious: Yes (Other)
  Sender: FDA-Public Use
  Company Number: 1600132

PATIENT
  Age: 64 Year
  Sex: Male
  Weight: 74 kg

DRUGS (3)
  1. OXALIPLATIN [Suspect]
     Indication: ADENOCARCINOMA GASTRIC
     Dosage: 160 MG MILLIGRAM(S) (UNKNOWN)
     Route: 041
     Dates: start: 20130103, end: 20130103
  2. OXALIPLATIN [Suspect]
     Indication: ADENOCARCINOMA GASTRIC
     Dosage: 160 MG MILLIGRAM(S) (UNKNOWN)
     Route: 041
     Dates: start: 20130103, end: 20130103
  3. OXALIPLATIN [Suspect]
     Indication: ADENOCARCINOMA GASTRIC
     Dosage: 160 MG MILLIGRAM(S) (UNKNOWN)
     Route: 041
     Dates: start: 20130103, end: 20130103

REACTIONS (4)
  - Loss of consciousness [None]
  - Pulse absent [None]
  - Blood pressure decreased [None]
  - Unresponsive to stimuli [None]
